FAERS Safety Report 15925820 (Version 1)
Quarter: 2019Q1

REPORT INFORMATION
  Report Type: Spontaneous
  Country: FR (occurrence: FR)
  Receive Date: 20190206
  Receipt Date: 20190206
  Transmission Date: 20190417
  Serious: Yes (Hospitalization)
  Sender: FDA-Public Use
  Company Number: FR-AUROBINDO-AUR-APL-2019-005502

PATIENT

DRUGS (4)
  1. DULOXETINE. [Suspect]
     Active Substance: DULOXETINE
     Indication: PRODUCT USED FOR UNKNOWN INDICATION
     Dosage: 840 MILLIGRAM
     Route: 048
     Dates: start: 20180725, end: 20180725
  2. LOPRAZOLAM [Suspect]
     Active Substance: LOPRAZOLAM
     Indication: INTENTIONAL OVERDOSE
     Dosage: 20 MILLIGRAM
     Route: 048
     Dates: start: 20180725, end: 20180725
  3. PROPRANOLOL [Suspect]
     Active Substance: PROPRANOLOL HYDROCHLORIDE
     Indication: INTENTIONAL OVERDOSE
     Dosage: 4 GRAM
     Route: 048
     Dates: start: 20180725, end: 20180725
  4. VORTIOXETINE HYDROBROMIDE [Suspect]
     Active Substance: VORTIOXETINE HYDROBROMIDE
     Indication: INTENTIONAL OVERDOSE
     Dosage: 840 MILLIGRAM
     Route: 048
     Dates: start: 20180725, end: 20180725

REACTIONS (2)
  - Mydriasis [Recovered/Resolved]
  - Hypotension [Recovered/Resolved]

NARRATIVE: CASE EVENT DATE: 20180725
